FAERS Safety Report 9863035 (Version 1)
Quarter: 2014Q1

REPORT INFORMATION
  Report Type: Spontaneous
  Country: US (occurrence: US)
  Receive Date: 20140203
  Receipt Date: 20140203
  Transmission Date: 20141002
  Serious: Yes (Other)
  Sender: FDA-Public Use
  Company Number: US-PFIZER INC-2014028830

PATIENT
  Age: 83 Year
  Sex: Female
  Weight: 79.4 kg

DRUGS (2)
  1. ESTRING [Suspect]
     Indication: UROGENITAL ATROPHY
     Dosage: UNK
     Route: 067
     Dates: start: 2012
  2. GLIPIZIDE [Concomitant]
     Indication: TYPE 2 DIABETES MELLITUS
     Dosage: UNK

REACTIONS (1)
  - Dementia [Not Recovered/Not Resolved]
